FAERS Safety Report 6992535-2 (Version None)
Quarter: 2010Q3

REPORT INFORMATION
  Report Type: 
  Country: None (occurrence: None)
  Receive Date: 20100915
  Receipt Date: 20100831
  Transmission Date: 20110219
  Serious: Yes (Other)
  Sender: FDA-Public Use
  Company Number: AUR-APL-2010-02239

PATIENT
  Age: 62 Year
  Sex: Male

DRUGS (1)
  1. SIMVASTATIN [Suspect]

REACTIONS (2)
  - DRUG ERUPTION [None]
  - PRODUCT SUBSTITUTION ISSUE [None]
